FAERS Safety Report 10418897 (Version 1)
Quarter: 2014Q3

REPORT INFORMATION
  Report Type: Spontaneous
  Country: GB (occurrence: None)
  Receive Date: 20140827
  Receipt Date: 20140827
  Transmission Date: 20150326
  Serious: Yes (Other)
  Sender: FDA-Public Use
  Company Number: AUR-APL-2014-09043

PATIENT
  Age: 65 Year
  Sex: Male
  Weight: 74.4 kg

DRUGS (1)
  1. PERINDOPRIL (PERINDOPRIL) [Suspect]
     Active Substance: PERINDOPRIL
     Indication: PRODUCT USED FOR UNKNOWN INDICATION

REACTIONS (1)
  - Rash pustular [None]

NARRATIVE: CASE EVENT DATE: 20131001
